FAERS Safety Report 4650227-9 (Version None)
Quarter: 2005Q2

REPORT INFORMATION
  Report Type: 
  Country: None (occurrence: None)
  Receive Date: 20050428
  Receipt Date: 20050415
  Transmission Date: 20051028
  Serious: Yes (Hospitalization, Other)
  Sender: FDA-Public Use
  Company Number: KII-2005-0016068

PATIENT
  Age: 41 Year
  Sex: Male

DRUGS (8)
  1. OXYCONTIN [Suspect]
     Dosage: ORAL
     Route: 048
  2. ANTIDEPRESSANTS [Suspect]
     Dosage: ORAL
     Route: 048
  3. BENZODIAZEPINE DERIVATIVES [Suspect]
  4. CLONAZEPAM [Concomitant]
  5. ANTIPSYCHOTICS [Concomitant]
  6. ANTIEPILEPTICS [Concomitant]
  7. ANTIDEPRESSANTS [Concomitant]
  8. BENZODIAZEPINE DERIVATIVES [Concomitant]

REACTIONS (6)
  - BLOOD PRESSURE INCREASED [None]
  - BOWEL SOUNDS ABNORMAL [None]
  - DEPRESSED LEVEL OF CONSCIOUSNESS [None]
  - MULTIPLE DRUG OVERDOSE [None]
  - RESPIRATORY RATE DECREASED [None]
  - SOMNOLENCE [None]
